FAERS Safety Report 24620934 (Version 1)
Quarter: 2024Q4

REPORT INFORMATION
  Report Type: Spontaneous
  Country: US (occurrence: None)
  Receive Date: 20241114
  Receipt Date: 20241114
  Transmission Date: 20250115
  Serious: No
  Sender: Public
  Company Number: None

PATIENT
  Age: 54 Year
  Sex: Male

DRUGS (1)
  1. XELJANZ XR [Suspect]
     Active Substance: TOFACITINIB CITRATE
     Indication: Psoriatic arthropathy
     Dosage: OTHER QUANTITY : 1 TABLET BY MOUTHDAILYASDIRECTED;?FREQUENCY : DAILY;?
     Route: 048
     Dates: start: 202104

REACTIONS (2)
  - Illness [None]
  - Therapy interrupted [None]
